FAERS Safety Report 8200557-9 (Version None)
Quarter: 2012Q1

REPORT INFORMATION
  Report Type: 
  Country: None (occurrence: None)
  Receive Date: 20120306
  Receipt Date: 20120217
  Transmission Date: 20120608
  Serious: Yes (Death)
  Sender: FDA-Public Use
  Company Number: 2012P1004671

PATIENT
  Age: 66 Year
  Sex: Female

DRUGS (1)
  1. SANTYL [Suspect]
     Indication: DECUBITUS ULCER
     Dosage: QD;TOP
     Route: 061
     Dates: start: 20120208

REACTIONS (2)
  - WOUND SECRETION [None]
  - OPEN WOUND [None]
